FAERS Safety Report 6710391-4 (Version None)
Quarter: 2010Q2

REPORT INFORMATION
  Report Type: 
  Country: None (occurrence: None)
  Receive Date: 20100430
  Receipt Date: 20100316
  Transmission Date: 20101027
  Serious: Yes (Disabling)
  Sender: FDA-Public Use
  Company Number: 2010-00343

PATIENT
  Age: 47 Year
  Sex: Female
  Weight: 76.2 kg

DRUGS (5)
  1. SIMVASTATIN [Suspect]
     Indication: HYPERCHOLESTEROLAEMIA
     Dosage: 30 MG (1 IN 1 D), ORAL
     Route: 048
  2. LERCANIDIPINE [Suspect]
     Indication: HYPERTENSION
     Dosage: 10 MG (1 IN 1 D), ORAL
     Route: 048
  3. BENDROFLUAZIDE (BENDROFLUMETHIAZIDE) [Concomitant]
  4. GABAPENTIN [Concomitant]
  5. PARACETAMOL [Concomitant]

REACTIONS (2)
  - ENURESIS [None]
  - SOMNAMBULISM [None]
